FAERS Safety Report 10759664 (Version 2)
Quarter: 2015Q1

REPORT INFORMATION
  Report Type: Report from Study
  Country: US (occurrence: US)
  Receive Date: 20150203
  Receipt Date: 20150213
  Transmission Date: 20150721
  Serious: Yes (Hospitalization)
  Sender: FDA-Public Use
  Company Number: US-ACTELION-A-NJ2015-112089

PATIENT
  Age: 77 Year
  Sex: Female

DRUGS (3)
  1. WARFARIN [Concomitant]
     Active Substance: WARFARIN
  2. MACITENTAN [Suspect]
     Active Substance: MACITENTAN
     Indication: PULMONARY ARTERIAL HYPERTENSION
     Dosage: 10 MG, QD
     Route: 048
  3. TYVASO [Suspect]
     Active Substance: TREPROSTINIL
     Indication: PRODUCT USED FOR UNKNOWN INDICATION
     Dosage: 4 PUFFS, TID
     Route: 055

REACTIONS (9)
  - Gastric haemorrhage [Unknown]
  - Fatigue [Unknown]
  - Gastritis erosive [Unknown]
  - Anaemia [Unknown]
  - Blister [Unknown]
  - Haemorrhoids [Unknown]
  - Pruritus [Unknown]
  - Urticaria [Unknown]
  - Transfusion [Unknown]

NARRATIVE: CASE EVENT DATE: 20141222
